FAERS Safety Report 18255964 (Version 3)
Quarter: 2020Q4

REPORT INFORMATION
  Report Type: Spontaneous
  Country: US (occurrence: US)
  Receive Date: 20200911
  Receipt Date: 20201029
  Transmission Date: 20210113
  Serious: Yes (Hospitalization)
  Sender: FDA-Public Use
  Company Number: US-BIOGEN-2020BI00919415

PATIENT
  Sex: Female

DRUGS (1)
  1. TECFIDERA [Suspect]
     Active Substance: DIMETHYL FUMARATE
     Indication: MULTIPLE SCLEROSIS
     Route: 065
     Dates: start: 20200515, end: 20201022

REACTIONS (4)
  - Pulmonary mass [Not Recovered/Not Resolved]
  - Hypersensitivity [Recovered/Resolved]
  - Neck mass [Unknown]
  - Multiple sclerosis [Unknown]
